FAERS Safety Report 5453638-7 (Version None)
Quarter: 2007Q3

REPORT INFORMATION
  Report Type: 
  Country: None (occurrence: None)
  Receive Date: 20070917
  Receipt Date: 20070911
  Transmission Date: 20080115
  Serious: Yes (Hospitalization)
  Sender: FDA-Public Use
  Company Number: FR-SOLVAY-00207034052

PATIENT
  Age: 31467 Day
  Sex: Female

DRUGS (7)
  1. COVERSYL [Suspect]
     Indication: HYPERTENSION
     Dosage: DAILY DOSE: 2 MILLIGRAM(S)
     Route: 048
  2. DIAMICRON [Suspect]
     Indication: TYPE 2 DIABETES MELLITUS
     Dosage: DAILY DOSE: 90 MILLIGRAM(S)
     Route: 048
  3. DURAGESIC-100 [Suspect]
     Indication: PAIN
     Dosage: DAILY DOSE:  UNKNOWN
     Route: 062
     Dates: end: 20070601
  4. CORDIPATCH [Suspect]
     Indication: ILL-DEFINED DISORDER
     Dosage: DAILY DOSE: 10 MILLIGRAM(S)
     Route: 062
  5. MINISINTROM [Suspect]
     Indication: THROMBOSIS PROPHYLAXIS
     Dosage: DAILY DOSE:  5 DOSAGE FORMS PER WEEK
     Route: 048
     Dates: end: 20070625
  6. DEROXAT [Suspect]
     Indication: DEPRESSION
     Dosage: DAILY DOSE: 1 DOSAGE FORM
     Route: 048
  7. MOPRAL [Suspect]
     Indication: ILL-DEFINED DISORDER
     Dosage: DAILY DOSE: 1 DOSAGE FORM
     Route: 048

REACTIONS (4)
  - ANOREXIA [None]
  - DIABETES MELLITUS INADEQUATE CONTROL [None]
  - GENERAL PHYSICAL HEALTH DETERIORATION [None]
  - SOMNOLENCE [None]
